FAERS Safety Report 5430347-1 (Version None)
Quarter: 2007Q3

REPORT INFORMATION
  Report Type: 
  Country: None (occurrence: None)
  Receive Date: 20070828
  Receipt Date: 20070824
  Transmission Date: 20080115
  Serious: Yes (Other)
  Sender: FDA-Public Use
  Company Number: TKT01200700399

PATIENT
  Age: 5 Year
  Sex: Male
  Weight: 26.8 kg

DRUGS (4)
  1. IDURSULFASE (IDURSULFASE) (0.5 MILLIGRAM(S) /KILOGRAM, CONCENTRATE FOR [Suspect]
     Indication: MUCOPOLYSACCHARIDOSIS II
     Dosage: 12 MG, 1 IN 1 WK, INTRAVENOUS DRIP; 12 MG, 1 IN 1 WK, INTRAVENOUS DRIP
     Route: 041
     Dates: start: 20060911, end: 20070710
  2. IDURSULFASE (IDURSULFASE) (0.5 MILLIGRAM(S) /KILOGRAM, CONCENTRATE FOR [Suspect]
     Indication: MUCOPOLYSACCHARIDOSIS II
     Dosage: 12 MG, 1 IN 1 WK, INTRAVENOUS DRIP; 12 MG, 1 IN 1 WK, INTRAVENOUS DRIP
     Route: 041
     Dates: start: 20070809
  3. CLARITIN [Concomitant]
  4. ATENOILOL (ATENOLOL) [Concomitant]

REACTIONS (10)
  - APNOEA [None]
  - CHILLS [None]
  - COUGH [None]
  - CRYING [None]
  - ERYTHEMA [None]
  - HYPERTENSION [None]
  - INFUSION RELATED REACTION [None]
  - PERIPHERAL COLDNESS [None]
  - RASH [None]
  - RESPIRATORY DISTRESS [None]
